FAERS Safety Report 7275975-6 (Version None)
Quarter: 2011Q1

REPORT INFORMATION
  Report Type: 
  Country: None (occurrence: None)
  Receive Date: 20110204
  Receipt Date: 20110131
  Transmission Date: 20110831
  Serious: Yes (Hospitalization)
  Sender: FDA-Public Use
  Company Number: A0911552A

PATIENT
  Age: 24 Year
  Sex: Female
  Weight: 68.2 kg

DRUGS (7)
  1. AUGMENTIN '125' [Suspect]
     Dates: start: 20101201, end: 20101216
  2. HUMIRA [Suspect]
     Indication: CROHN'S DISEASE
     Dates: start: 20101101
  3. ETONOGESTREL [Concomitant]
  4. OMNICEF [Suspect]
     Dates: start: 20101216
  5. ESCITALOPRAM [Concomitant]
  6. NUVARING [Concomitant]
  7. ESCITALOPRAM OXALATE [Concomitant]

REACTIONS (2)
  - DIARRHOEA [None]
  - DEHYDRATION [None]
